FAERS Safety Report 5194218-0 (Version None)
Quarter: 2006Q4

REPORT INFORMATION
  Report Type: 
  Country: None (occurrence: None)
  Receive Date: 20061228
  Receipt Date: 20061128
  Transmission Date: 20070319
  Serious: Yes (Hospitalization, Other)
  Sender: FDA-Public Use
  Company Number: US-PFIZER INC-2006150473

PATIENT
  Sex: Male

DRUGS (2)
  1. BEXTRA [Suspect]
  2. VIOXX [Suspect]
     Route: 048
     Dates: start: 20010516, end: 20020508

REACTIONS (2)
  - CEREBROVASCULAR ACCIDENT [None]
  - HEMIPARESIS [None]
